FAERS Safety Report 13847104 (Version 1)
Quarter: 2017Q3

REPORT INFORMATION
  Report Type: Spontaneous
  Country: GR (occurrence: GR)
  Receive Date: 20170808
  Receipt Date: 20170808
  Transmission Date: 20171127
  Serious: Yes (Other)
  Sender: FDA-Public Use
  Company Number: GR-PFIZER INC-2017337142

PATIENT
  Age: 40 Year
  Sex: Male
  Weight: 85 kg

DRUGS (3)
  1. ATORVASTATIN CALCIUM. [Suspect]
     Active Substance: ATORVASTATIN CALCIUM
     Indication: DYSLIPIDAEMIA
     Dosage: 1 DF, 1X/DAY
     Route: 048
     Dates: start: 2011, end: 2012
  2. ROSUVASTATIN CALCIUM. [Suspect]
     Active Substance: ROSUVASTATIN CALCIUM
     Indication: DYSLIPIDAEMIA
     Dosage: 1 DF, 1X/DAY
     Route: 048
     Dates: start: 2014, end: 2014
  3. PRAVASTATIN. [Suspect]
     Active Substance: PRAVASTATIN
     Indication: DYSLIPIDAEMIA
     Dosage: 1 DF, 1X/DAY
     Route: 048
     Dates: start: 2011, end: 2011

REACTIONS (3)
  - Asthenia [Recovered/Resolved]
  - Blood creatine phosphokinase increased [Recovered/Resolved]
  - Myalgia [Recovered/Resolved]

NARRATIVE: CASE EVENT DATE: 2011
